APPROVED DRUG PRODUCT: CALCIUM GLUCEPTATE
Active Ingredient: CALCIUM GLUCEPTATE
Strength: EQ 90MG CALCIUM/5ML
Dosage Form/Route: INJECTABLE;INJECTION
Application: A089373 | Product #001
Applicant: ABRAXIS PHARMACEUTICAL PRODUCTS
Approved: Apr 30, 1987 | RLD: No | RS: No | Type: DISCN